FAERS Safety Report 13397569 (Version 6)
Quarter: 2019Q3

REPORT INFORMATION
  Report Type: Spontaneous
  Country: US (occurrence: US)
  Receive Date: 20170403
  Receipt Date: 20190913
  Transmission Date: 20191004
  Serious: Yes (Death)
  Sender: FDA-Public Use
  Company Number: US-PFIZER INC-2017142386

PATIENT
  Age: 78 Year
  Sex: Male

DRUGS (1)
  1. DILANTIN [Suspect]
     Active Substance: PHENYTOIN
     Indication: SEIZURE
     Dosage: 450 MG, DAILY
     Dates: start: 1996

REACTIONS (5)
  - Emphysema [Fatal]
  - Cardiac failure congestive [Fatal]
  - Asbestosis [Fatal]
  - Disease progression [Fatal]
  - Chronic obstructive pulmonary disease [Fatal]

NARRATIVE: CASE EVENT DATE: 2015
